FAERS Safety Report 10595352 (Version 3)
Quarter: 2014Q4

REPORT INFORMATION
  Report Type: Spontaneous
  Country: US (occurrence: None)
  Receive Date: 20141118
  Receipt Date: 20141224
  Transmission Date: 20150529
  Serious: Yes (Hospitalization)
  Sender: FDA-Public Use
  Company Number: 2014-US-003647

PATIENT
  Age: 41 Year
  Sex: Female

DRUGS (1)
  1. XYREM [Suspect]
     Active Substance: SODIUM OXYBATE
     Indication: NARCOLEPSY
     Dosage: DOSE ADJUSTMENT, ORAL
     Route: 048
     Dates: start: 200512, end: 2005

REACTIONS (3)
  - Maternal exposure during pregnancy [None]
  - Caesarean section [None]
  - Premature delivery [None]

NARRATIVE: CASE EVENT DATE: 20141023
